FAERS Safety Report 5815101-0 (Version None)
Quarter: 2008Q3

REPORT INFORMATION
  Report Type: 
  Country: None (occurrence: None)
  Receive Date: 20080718
  Receipt Date: 20080708
  Transmission Date: 20090109
  Serious: Yes (Other)
  Sender: FDA-Public Use
  Company Number: US-MERCK-0705USA05332

PATIENT
  Age: 54 Year
  Sex: Female
  Weight: 65 kg

DRUGS (12)
  1. FOSAMAX [Suspect]
     Indication: OSTEOPENIA
     Route: 048
     Dates: start: 19961001, end: 19970401
  2. FOSAMAX [Suspect]
     Route: 048
     Dates: end: 20030101
  3. FOSAMAX [Suspect]
     Indication: OSTEOPOROSIS
     Route: 048
     Dates: start: 19961001, end: 19970401
  4. FOSAMAX [Suspect]
     Route: 048
     Dates: end: 20030101
  5. PREMARIN [Concomitant]
     Route: 065
     Dates: start: 19740101, end: 20020101
  6. PREMARIN [Concomitant]
     Route: 065
     Dates: start: 19740101, end: 20020101
  7. PROPULSID [Concomitant]
     Route: 065
  8. PROPULSID [Concomitant]
     Route: 065
  9. TYLENOL [Concomitant]
     Route: 065
  10. CALCIUM (UNSPECIFIED) [Concomitant]
     Route: 065
  11. VITAMINS (UNSPECIFIED) [Concomitant]
     Route: 065
  12. VITAMIN D (UNSPECIFIED) [Concomitant]
     Route: 065

REACTIONS (7)
  - ARTHROPATHY [None]
  - BACK PAIN [None]
  - DENTAL CARIES [None]
  - JOINT DISLOCATION [None]
  - OSTEOARTHRITIS [None]
  - TEMPOROMANDIBULAR JOINT SYNDROME [None]
  - TOOTH LOSS [None]
